FAERS Safety Report 6968185-0 (Version None)
Quarter: 2010Q3

REPORT INFORMATION
  Report Type: 
  Country: None (occurrence: None)
  Receive Date: 20100907
  Receipt Date: 20100824
  Transmission Date: 20110219
  Serious: Yes (Other)
  Sender: FDA-Public Use
  Company Number: FI-CELGENEUS-055-20785-10082727

PATIENT
  Age: 83 Year
  Sex: Female

DRUGS (1)
  1. THALIDOMIDE [Suspect]
     Indication: MULTIPLE MYELOMA
     Route: 048
     Dates: start: 20051015, end: 20060415

REACTIONS (3)
  - BONE MARROW FAILURE [None]
  - INFECTION [None]
  - VENOUS THROMBOSIS [None]
